FAERS Safety Report 6525525-4 (Version None)
Quarter: 2010Q1

REPORT INFORMATION
  Report Type: 
  Country: None (occurrence: None)
  Receive Date: 20100104
  Receipt Date: 20091225
  Transmission Date: 20100710
  Serious: Yes (Hospitalization)
  Sender: FDA-Public Use
  Company Number: JP-ASTRAZENECA-2009SE29346

PATIENT
  Age: 28040 Day
  Sex: Male
  Weight: 50 kg

DRUGS (4)
  1. IRESSA [Suspect]
     Indication: LUNG ADENOCARCINOMA
     Route: 048
     Dates: start: 20050201, end: 20050301
  2. IRESSA [Suspect]
     Route: 048
     Dates: start: 20050831, end: 20050906
  3. VASOLAN [Concomitant]
     Indication: TACHYCARDIA
     Route: 048
     Dates: start: 20040205
  4. HALFDIGOXIN [Concomitant]
     Indication: ATRIAL FIBRILLATION
     Route: 048
     Dates: start: 20040205

REACTIONS (1)
  - INTERSTITIAL LUNG DISEASE [None]
